FAERS Safety Report 4999276-1 (Version None)
Quarter: 2006Q2

REPORT INFORMATION
  Report Type: 
  Country: None (occurrence: None)
  Receive Date: 20060511
  Receipt Date: 20060504
  Transmission Date: 20061013
  Serious: Yes (Hospitalization)
  Sender: FDA-Public Use
  Company Number: FR-AVENTIS-200611710FR

PATIENT
  Age: 74 Year
  Sex: Male

DRUGS (6)
  1. LASILIX [Suspect]
     Indication: DRUG USE FOR UNKNOWN INDICATION
     Route: 048
     Dates: start: 20051019, end: 20060208
  2. ALDACTONE [Concomitant]
     Route: 048
     Dates: start: 20051019
  3. PREVISCAN [Concomitant]
     Route: 048
     Dates: start: 20051019
  4. TARDYFERON [Concomitant]
     Route: 048
     Dates: start: 20050212
  5. URBANYL [Concomitant]
     Route: 048
     Dates: start: 20051019
  6. TRILEPTAL [Concomitant]
     Route: 048
     Dates: start: 20051019

REACTIONS (5)
  - BLOOD BICARBONATE INCREASED [None]
  - CONDITION AGGRAVATED [None]
  - DISTURBANCE IN ATTENTION [None]
  - RESPIRATORY ACIDOSIS [None]
  - RESPIRATORY FAILURE [None]
